FAERS Safety Report 5407542-0 (Version None)
Quarter: 2007Q3

REPORT INFORMATION
  Report Type: 
  Country: None (occurrence: None)
  Receive Date: 20070807
  Receipt Date: 20070727
  Transmission Date: 20080115
  Serious: Yes (Hospitalization, Other)
  Sender: FDA-Public Use
  Company Number: US-ELI_LILLY_AND_COMPANY-US200707006739

PATIENT
  Age: 62 Year
  Sex: Female

DRUGS (5)
  1. CYMBALTA [Suspect]
     Dosage: 30 MG, UNK
  2. CYMBALTA [Suspect]
     Dosage: 60 MG, DAILY (1/D)
     Dates: end: 20070723
  3. GEODON [Concomitant]
  4. PROFENAL [Concomitant]
  5. ATIVAN [Concomitant]

REACTIONS (2)
  - LOSS OF CONSCIOUSNESS [None]
  - PANCYTOPENIA [None]
